FAERS Safety Report 4646675-3 (Version None)
Quarter: 2005Q2

REPORT INFORMATION
  Report Type: 
  Country: None (occurrence: None)
  Receive Date: 20050427
  Receipt Date: 20050425
  Transmission Date: 20051028
  Serious: Yes (Death)
  Sender: FDA-Public Use
  Company Number: PHFR2005GB01588

PATIENT
  Age: 70 Year
  Sex: Female
  Weight: 60 kg

DRUGS (4)
  1. DICLOFENAC SODIUM [Suspect]
     Indication: FRACTURE
     Dosage: 75 MG/DAY
     Route: 048
     Dates: start: 20050217
  2. CO-CODAMOL [Concomitant]
     Indication: PAIN
     Route: 048
     Dates: start: 20050211
  3. BENDROFLUAZIDE [Concomitant]
     Indication: HYPERTENSION
     Dosage: 2.5 MG/DAY
     Route: 048
  4. ASPIRIN [Concomitant]
     Indication: HYPERTENSION
     Dosage: 75 MG/DAY
     Route: 048

REACTIONS (2)
  - GASTRIC HAEMORRHAGE [None]
  - GASTRITIS [None]
